FAERS Safety Report 26088657 (Version 1)
Quarter: 2025Q4

REPORT INFORMATION
  Report Type: Spontaneous
  Country: US (occurrence: None)
  Receive Date: 20251125
  Receipt Date: 20251125
  Transmission Date: 20260118
  Serious: Yes (Life-Threatening)
  Sender: FDA-CTU
  Company Number: None

PATIENT
  Age: 60 Year
  Sex: Female
  Weight: 52.7 kg

DRUGS (7)
  1. LEQEMBI [Suspect]
     Active Substance: LECANEMAB-IRMB
     Dosage: OTHER FREQUENCY : EVERY 2 WEEKS;?
     Route: 042
     Dates: start: 20251027, end: 20251110
  2. Acebutolol 200 mg [Concomitant]
     Dates: start: 20241011
  3. ESTRADIOL [Concomitant]
     Active Substance: ESTRADIOL
     Dates: start: 20240906
  4. LEVOTHYROXINE [Concomitant]
     Active Substance: LEVOTHYROXINE
     Dates: start: 20241216
  5. PROGESTERONE [Concomitant]
     Active Substance: PROGESTERONE
     Dates: start: 20240906
  6. NURTEC ODT [Concomitant]
     Active Substance: RIMEGEPANT SULFATE
     Dates: start: 20241108
  7. ZOLPIDEM TARTRATE [Concomitant]
     Active Substance: ZOLPIDEM TARTRATE
     Dates: start: 20240918

REACTIONS (1)
  - Subdural haematoma [None]

NARRATIVE: CASE EVENT DATE: 20251119
